FAERS Safety Report 25418438 (Version 3)
Quarter: 2025Q3

REPORT INFORMATION
  Report Type: Spontaneous
  Country: US (occurrence: US)
  Receive Date: 20250610
  Receipt Date: 20250926
  Transmission Date: 20251021
  Serious: No
  Sender: BRISTOL-MYERS SQUIBB COMPANY
  Company Number: US-BRISTOL-MYERS SQUIBB COMPANY-2025-082335

PATIENT
  Age: 71 Year
  Sex: Female
  Weight: 78.02 kg

DRUGS (1)
  1. ORENCIA [Suspect]
     Active Substance: ABATACEPT
     Indication: Rheumatoid arthritis
     Dosage: CODE UNIT: 125 MG/ML
     Dates: start: 202406

REACTIONS (1)
  - Product storage error [Unknown]

NARRATIVE: CASE EVENT DATE: 20250606
